FAERS Safety Report 9060702 (Version 2)
Quarter: 2013Q1

REPORT INFORMATION
  Report Type: Spontaneous
  Country: US (occurrence: US)
  Receive Date: 20130204
  Receipt Date: 20130304
  Transmission Date: 20140127
  Serious: Yes (Disabling)
  Sender: FDA-Public Use
  Company Number: US-GILEAD-2013-0068904

PATIENT
  Sex: Male

DRUGS (7)
  1. VIREAD [Suspect]
     Indication: PRODUCT USED FOR UNKNOWN INDICATION
     Dosage: UNK
     Dates: start: 2003
  2. EMTRIVA [Suspect]
     Indication: PRODUCT USED FOR UNKNOWN INDICATION
  3. BARACLUDE [Concomitant]
  4. NORVIR [Concomitant]
  5. REYATAZ [Concomitant]
  6. BACTRIM [Concomitant]
  7. CLARITHROMYCIN [Concomitant]

REACTIONS (2)
  - Abasia [Recovered/Resolved]
  - Bone pain [Recovered/Resolved]
